FAERS Safety Report 6929507-X (Version None)
Quarter: 2010Q3

REPORT INFORMATION
  Report Type: 
  Country: None (occurrence: None)
  Receive Date: 20100818
  Receipt Date: 20100811
  Transmission Date: 20110219
  Serious: No
  Sender: FDA-Public Use
  Company Number: US-BIOGENIDEC-2010BI028087

PATIENT
  Age: 66 Year
  Sex: Female

DRUGS (2)
  1. TYSABRI [Suspect]
     Indication: MULTIPLE SCLEROSIS
     Route: 042
     Dates: start: 20071108, end: 20090619
  2. TYSABRI [Suspect]
     Route: 042
     Dates: start: 20100205

REACTIONS (2)
  - EXERCISE TOLERANCE DECREASED [None]
  - GAIT DISTURBANCE [None]
